FAERS Safety Report 8384464-7 (Version None)
Quarter: 2012Q2

REPORT INFORMATION
  Report Type: 
  Country: None (occurrence: None)
  Receive Date: 20120524
  Receipt Date: 20120522
  Transmission Date: 20120825
  Serious: Yes (Other)
  Sender: FDA-Public Use
  Company Number: US-GLAXOSMITHKLINE-B0803323A

PATIENT
  Age: 52 Year
  Sex: Female

DRUGS (5)
  1. PREMARIN [Suspect]
     Indication: BLOOD OESTROGEN DECREASED
     Dosage: .625MGG PER DAY
     Route: 067
     Dates: start: 20120201
  2. LOVAZA [Suspect]
     Indication: BLOOD TRIGLYCERIDES INCREASED
     Dosage: 2000MG TWICE PER DAY
     Route: 048
  3. TRICOR [Suspect]
     Indication: BLOOD CHOLESTEROL INCREASED
     Route: 065
     Dates: end: 20110701
  4. PRAVASTATIN [Suspect]
     Indication: BLOOD CHOLESTEROL INCREASED
     Route: 048
  5. CONJUGATED ESTROGENS [Concomitant]

REACTIONS (11)
  - DYSURIA [None]
  - ACTIVITIES OF DAILY LIVING IMPAIRED [None]
  - BACK PAIN [None]
  - ARTHRALGIA [None]
  - PRODUCT ADHESION ISSUE [None]
  - PAIN IN EXTREMITY [None]
  - OFF LABEL USE [None]
  - HEPATIC ENZYME INCREASED [None]
  - LIVER DISORDER [None]
  - PRODUCT PHYSICAL ISSUE [None]
  - CHROMATURIA [None]
